FAERS Safety Report 4365430-5 (Version None)
Quarter: 2004Q2

REPORT INFORMATION
  Report Type: 
  Country: None (occurrence: None)
  Receive Date: 20040526
  Receipt Date: 20040526
  Transmission Date: 20050107
  Serious: Yes (Hospitalization)
  Sender: FDA-Public Use
  Company Number: None

PATIENT
  Age: 66 Year
  Sex: Male
  Weight: 73.4827 kg

DRUGS (26)
  1. QUADRAMET SAMARIUM-153-EDTMP(SM-153) [Suspect]
     Indication: METASTASES TO BONE
     Dosage: 0.75 MCI/ KG
     Dates: start: 20031218
  2. QUADRAMET SAMARIUM-153-EDTMP(SM-153) [Suspect]
     Indication: PROSTATE CANCER
     Dosage: 0.75 MCI/ KG
     Dates: start: 20031218
  3. QUADRAMET SAMARIUM-153-EDTMP(SM-153) [Suspect]
     Indication: METASTASES TO BONE
     Dosage: 0.75 MCI/ KG
     Dates: start: 20040311
  4. QUADRAMET SAMARIUM-153-EDTMP(SM-153) [Suspect]
     Indication: PROSTATE CANCER
     Dosage: 0.75 MCI/ KG
     Dates: start: 20040311
  5. ZOLEDRONIC ACID [Suspect]
     Indication: METASTASES TO BONE
     Dosage: 4 MG
     Dates: start: 20031219
  6. ZOLEDRONIC ACID [Suspect]
     Indication: PROSTATE CANCER
     Dosage: 4 MG
     Dates: start: 20031219
  7. ZOLEDRONIC ACID [Suspect]
     Indication: METASTASES TO BONE
     Dosage: 4 MG
     Dates: start: 20040113
  8. ZOLEDRONIC ACID [Suspect]
     Indication: PROSTATE CANCER
     Dosage: 4 MG
     Dates: start: 20040113
  9. ZOLEDRONIC ACID [Suspect]
     Indication: METASTASES TO BONE
     Dosage: 4 MG
     Dates: start: 20040210
  10. ZOLEDRONIC ACID [Suspect]
     Indication: PROSTATE CANCER
     Dosage: 4 MG
     Dates: start: 20040210
  11. ZOLEDRONIC ACID [Suspect]
     Indication: METASTASES TO BONE
     Dosage: 4 MG
     Dates: start: 20040311
  12. ZOLEDRONIC ACID [Suspect]
     Indication: PROSTATE CANCER
     Dosage: 4 MG
     Dates: start: 20040311
  13. ZOLEDRONIC ACID [Suspect]
     Indication: METASTASES TO BONE
     Dosage: 4 MG
     Dates: start: 20040406
  14. ZOLEDRONIC ACID [Suspect]
     Indication: PROSTATE CANCER
     Dosage: 4 MG
     Dates: start: 20040406
  15. ZOLEDRONIC ACID [Suspect]
     Indication: METASTASES TO BONE
     Dosage: 4 MG
     Dates: start: 20040504
  16. ZOLEDRONIC ACID [Suspect]
     Indication: PROSTATE CANCER
     Dosage: 4 MG
     Dates: start: 20040504
  17. OXYCONTIN [Concomitant]
  18. OXYCODONE [Concomitant]
  19. HYDRA-ZIDE [Concomitant]
  20. PREVACHOL [Concomitant]
  21. M.V.I. [Concomitant]
  22. CALCIUM SUPPLEMENT [Concomitant]
  23. SENOKOT [Concomitant]
  24. COLACE [Concomitant]
  25. XELODA [Concomitant]
  26. TAXOTERE [Concomitant]

REACTIONS (3)
  - BACK PAIN [None]
  - HEMIPARESIS [None]
  - PAIN IN EXTREMITY [None]
